FAERS Safety Report 15258814 (Version 1)
Quarter: 2018Q3

REPORT INFORMATION
  Report Type: Spontaneous
  Country: GB (occurrence: GB)
  Receive Date: 20180809
  Receipt Date: 20180809
  Transmission Date: 20181010
  Serious: Yes (Other)
  Sender: FDA-Public Use
  Company Number: GB-ASTELLAS-2018US034971

PATIENT
  Sex: Male

DRUGS (1)
  1. PROGRAF [Suspect]
     Active Substance: TACROLIMUS\TACROLIMUS ANHYDROUS
     Indication: IMMUNOSUPPRESSION
     Dosage: UNK UNK, UNKNOWN FREQ.
     Route: 065

REACTIONS (37)
  - Haemoptysis [Unknown]
  - Muscle atrophy [Unknown]
  - Dyskinesia [Unknown]
  - Aphasia [Unknown]
  - Vision blurred [Unknown]
  - Paraesthesia [Unknown]
  - Lymphocele [Unknown]
  - Dyspnoea [Unknown]
  - Bone pain [Unknown]
  - Rash vesicular [Unknown]
  - Contusion [Unknown]
  - Insomnia [Unknown]
  - Dysphagia [Unknown]
  - Dizziness [Unknown]
  - Fine motor skill dysfunction [Unknown]
  - Hydrocele [Unknown]
  - Dental caries [Unknown]
  - Hyperhidrosis [Unknown]
  - Posture abnormal [Unknown]
  - Eye pruritus [Unknown]
  - Muscular weakness [Unknown]
  - Weight decreased [Unknown]
  - Fluid retention [Unknown]
  - Pruritus [Unknown]
  - Visual impairment [Unknown]
  - Abdominal pain [Unknown]
  - Mental impairment [Unknown]
  - Eye irritation [Unknown]
  - Dysphoria [Unknown]
  - Mental disorder [Unknown]
  - Feeling of body temperature change [Unknown]
  - Gait inability [Unknown]
  - Tremor [Unknown]
  - Alopecia [Unknown]
  - Mastication disorder [Unknown]
  - Pyrexia [Unknown]
  - Fatigue [Unknown]
